FAERS Safety Report 14322357 (Version 2)
Quarter: 2018Q2

REPORT INFORMATION
  Report Type: Spontaneous
  Country: FR (occurrence: FR)
  Receive Date: 20171225
  Receipt Date: 20180404
  Transmission Date: 20180711
  Serious: Yes (Other)
  Sender: FDA-Public Use
  Company Number: PHHY2016FR185880

PATIENT
  Age: 51 Year
  Sex: Female
  Weight: 60 kg

DRUGS (12)
  1. TACROLIMUS. [Suspect]
     Active Substance: TACROLIMUS
     Dosage: 13 MG, UNK
     Route: 065
     Dates: start: 20170824, end: 20171025
  2. TACROLIMUS. [Suspect]
     Active Substance: TACROLIMUS
     Indication: IMMUNOSUPPRESSION
     Dosage: 13 MG, QD
     Route: 065
     Dates: start: 20160818
  3. CORTANCYL [Concomitant]
     Active Substance: PREDNISONE
     Dosage: 2.5 UNK, ONCE DAILY
     Route: 065
     Dates: start: 20170425, end: 20171025
  4. CORTANCYL [Concomitant]
     Active Substance: PREDNISONE
     Indication: PROPHYLAXIS AGAINST TRANSPLANT REJECTION
     Dosage: 10 UNK, ONCE DAILY
     Route: 065
     Dates: start: 20161021, end: 20161102
  5. TACROLIMUS. [Suspect]
     Active Substance: TACROLIMUS
     Dosage: 15 MG, QD
     Route: 065
     Dates: start: 20161007
  6. CORTANCYL [Concomitant]
     Active Substance: PREDNISONE
     Dosage: 5 UNK, ONCE DAILY
     Route: 065
     Dates: start: 20161103, end: 20170424
  7. TACROLIMUS. [Suspect]
     Active Substance: TACROLIMUS
     Dosage: 15 MG, QD
     Route: 065
     Dates: start: 20170425
  8. TACROLIMUS. [Suspect]
     Active Substance: TACROLIMUS
     Dosage: 16 MG, QD
     Route: 065
     Dates: start: 20161021
  9. TACROLIMUS. [Suspect]
     Active Substance: TACROLIMUS
     Dosage: 17 MG, QD
     Route: 065
     Dates: start: 20161103
  10. TACROLIMUS. [Suspect]
     Active Substance: TACROLIMUS
     Dosage: 18 MG, QD
     Route: 065
     Dates: start: 20161202
  11. CORTANCYL [Concomitant]
     Active Substance: PREDNISONE
     Dosage: 7.5 UNK, ONCE DAILY
     Route: 065
     Dates: start: 20171026
  12. TACROLIMUS. [Suspect]
     Active Substance: TACROLIMUS
     Dosage: 16 MG, QD
     Route: 065
     Dates: start: 20170105

REACTIONS (2)
  - Tremor [Recovering/Resolving]
  - Urinary tract infection [Recovered/Resolved]

NARRATIVE: CASE EVENT DATE: 20161201
